FAERS Safety Report 8597900-8 (Version None)
Quarter: 2012Q3

REPORT INFORMATION
  Report Type: 
  Country: None (occurrence: None)
  Receive Date: 20120816
  Receipt Date: 20120606
  Transmission Date: 20120928
  Serious: Yes (Hospitalization, Other)
  Sender: FDA-Public Use
  Company Number: TR-BAYER-2012-081739

PATIENT
  Age: 60 Year
  Sex: Male

DRUGS (6)
  1. CIPROFLOXACIN HCL [Suspect]
     Indication: ANTIBIOTIC PROPHYLAXIS
     Dosage: 500 MG, BID
  2. IMIPENEM [Concomitant]
     Dosage: 500 MG/ONCE A DAY
  3. IMIPENEM [Concomitant]
     Indication: PROSTATITIS
     Dosage: 500 MG, QID
     Dates: start: 20100209
  4. LEVOFLOXACIN [Suspect]
     Dosage: 500 MG ONCE DAILY
     Dates: start: 20100310
  5. LEVOFLOXACIN [Suspect]
     Indication: BIOPSY PROSTATE
     Dosage: 500 MG ONCE DAILY
  6. ERTAPENEM [Concomitant]
     Indication: PROSTATITIS
     Dosage: DAILY DOSE 1 G

REACTIONS (6)
  - DYSURIA [None]
  - MALAISE [None]
  - PROSTATITIS [None]
  - PYREXIA [None]
  - CHILLS [None]
  - DRUG RESISTANCE [None]
